FAERS Safety Report 5281723-1 (Version None)
Quarter: 2007Q1

REPORT INFORMATION
  Report Type: 
  Country: None (occurrence: None)
  Receive Date: 20070330
  Receipt Date: 20070327
  Transmission Date: 20070707
  Serious: Yes (Other)
  Sender: FDA-Public Use
  Company Number: US-GLAXOSMITHKLINE-A0644825A

PATIENT
  Age: 83 Year
  Sex: Female

DRUGS (8)
  1. COREG [Suspect]
     Indication: HYPERTENSION
     Dosage: 3.125MG TWICE PER DAY
     Route: 048
  2. HYDROCHLOROTHIAZIDE [Concomitant]
  3. NORVASC [Concomitant]
  4. PREMARIN [Concomitant]
  5. OSTEO BIFLEX [Concomitant]
  6. IBUPROFEN [Concomitant]
  7. ASPIRIN [Concomitant]
  8. LOVASTATIN [Concomitant]

REACTIONS (3)
  - EYE PAIN [None]
  - HEADACHE [None]
  - TEMPORAL ARTERITIS [None]
